FAERS Safety Report 9003920 (Version 1)
Quarter: 2013Q1

REPORT INFORMATION
  Report Type: Spontaneous
  Country: BR (occurrence: BR)
  Receive Date: 20130108
  Receipt Date: 20130108
  Transmission Date: 20140127
  Serious: Yes (Hospitalization, Other)
  Sender: FDA-Public Use
  Company Number: BR-009507513-1301BRA002821

PATIENT
  Age: 76 Year
  Sex: Female

DRUGS (1)
  1. SIMVASTATIN [Suspect]
     Indication: BLOOD CHOLESTEROL INCREASED
     Dosage: 20 MG, UNK
     Route: 048
     Dates: start: 2012, end: 201301

REACTIONS (4)
  - Coronary artery occlusion [Recovered/Resolved]
  - Coronary artery bypass [Recovered/Resolved]
  - Angioplasty [Recovered/Resolved]
  - Hypertension [Unknown]
